FAERS Safety Report 13817685 (Version 1)
Quarter: 2017Q3

REPORT INFORMATION
  Report Type: Spontaneous
  Country: GB (occurrence: GB)
  Receive Date: 20170731
  Receipt Date: 20170731
  Transmission Date: 20171127
  Serious: Yes (Other)
  Sender: FDA-Public Use
  Company Number: GB-MYLANLABS-2017M1044622

PATIENT

DRUGS (1)
  1. TOPIRAMATE. [Suspect]
     Active Substance: TOPIRAMATE
     Indication: MIGRAINE
     Dosage: ONCE AT MORNING ONCE AT NIGHT
     Route: 048
     Dates: start: 20170204, end: 20170601

REACTIONS (1)
  - Alopecia [Recovered/Resolved with Sequelae]

NARRATIVE: CASE EVENT DATE: 20170418
